FAERS Safety Report 22603123 (Version 1)
Quarter: 2023Q2

REPORT INFORMATION
  Report Type: Report from Study
  Country: CN (occurrence: CN)
  Receive Date: 20230615
  Receipt Date: 20230615
  Transmission Date: 20230721
  Serious: Yes (Life-Threatening, Hospitalization, Other)
  Sender: FDA-Public Use
  Company Number: CN-ALS-000980

PATIENT
  Age: 27 Year
  Sex: Female
  Weight: 75.0 kg

DRUGS (5)
  1. METFORMIN [Suspect]
     Active Substance: METFORMIN HYDROCHLORIDE
     Indication: Product use in unapproved indication
     Dosage: METFORMIN 0.5 G (QID) WAS ADDED 3 YEARS AGO.
     Route: 048
  2. INSULIN NOS [Concomitant]
     Active Substance: INSULIN NOS
     Indication: Type 1 diabetes mellitus
     Dosage: T1DM MANAGED WITH AN INSULIN PUMP 15 YEARS AND IN RECENT YEARS, THE DOSAGE OF INSULIN WAS 45 IU/D.
     Route: 065
  3. DAPAGLIFLOZIN [Suspect]
     Active Substance: DAPAGLIFLOZIN
     Indication: Type 1 diabetes mellitus
     Dosage: 10 MG PER DAY
     Route: 065
  4. DAPAGLIFLOZIN [Suspect]
     Active Substance: DAPAGLIFLOZIN
     Indication: Type 1 diabetes mellitus
     Dosage: 3.3 MG PER DAY
     Route: 065
  5. DAPAGLIFLOZIN [Suspect]
     Active Substance: DAPAGLIFLOZIN
     Indication: Type 1 diabetes mellitus
     Dosage: RE INTRODUCED AFTER 45 DAYS 1.5 MG PER DAY
     Route: 065

REACTIONS (6)
  - Off label use [Unknown]
  - Urine ketone body present [Recovering/Resolving]
  - Hepatic steatosis [Unknown]
  - Overweight [Recovering/Resolving]
  - Euglycaemic diabetic ketoacidosis [Recovering/Resolving]
  - Diabetes mellitus inadequate control [Recovering/Resolving]
